FAERS Safety Report 16844388 (Version 1)
Quarter: 2019Q3

REPORT INFORMATION
  Report Type: Spontaneous
  Country: US (occurrence: US)
  Receive Date: 20190924
  Receipt Date: 20190924
  Transmission Date: 20191005
  Serious: Yes (Other)
  Sender: FDA-Public Use
  Company Number: US-BECTON DICKINSON-2019BDN00334

PATIENT

DRUGS (5)
  1. CHLORAPREP WITH TINT [Suspect]
     Active Substance: CHLORHEXIDINE GLUCONATE\ISOPROPYL ALCOHOL
     Indication: INFECTION PROPHYLAXIS
     Route: 061
  2. TEGADERM CHG DRESSING [Suspect]
     Active Substance: CHLORHEXIDINE GLUCONATE\DEVICE
     Dosage: 4^ X 4-3/4^
  3. CHLORAPREP [Suspect]
     Active Substance: CHLORHEXIDINE GLUCONATE\ISOPROPYL ALCOHOL
     Indication: INFECTION PROPHYLAXIS
     Route: 061
  4. LIDOCAINE. [Suspect]
     Active Substance: LIDOCAINE
     Dosage: 5 ML
  5. DOT PPICC 5F DL IR [Suspect]
     Active Substance: DEVICE

REACTIONS (2)
  - Feeling abnormal [Recovered/Resolved]
  - Seizure like phenomena [Recovered/Resolved]
